FAERS Safety Report 6403089-3 (Version None)
Quarter: 2009Q4

REPORT INFORMATION
  Report Type: 
  Country: None (occurrence: None)
  Receive Date: 20091016
  Receipt Date: 20091007
  Transmission Date: 20100525
  Serious: Yes (Hospitalization)
  Sender: FDA-Public Use
  Company Number: PHHY2009CH43344

PATIENT
  Sex: Female

DRUGS (13)
  1. TEGRETOL [Suspect]
     Indication: TRIGEMINAL NEURALGIA
     Dosage: 400MG DAILY
  2. PHENHYDAN [Suspect]
     Indication: TRIGEMINAL NEURALGIA
     Dosage: 300MG DAILY
     Dates: start: 20090501
  3. OXYCONTIN [Suspect]
     Indication: TRIGEMINAL NEURALGIA
     Dosage: 60 MG DAILY
     Dates: start: 20090801
  4. OXYNORM [Suspect]
     Indication: TRIGEMINAL NEURALGIA
     Dosage: 30MG DAILY
  5. ZOLPIDEM [Suspect]
     Indication: TRIGEMINAL NEURALGIA
     Dosage: 5MG DAILY
  6. NEURONTIN [Suspect]
     Indication: TRIGEMINAL NEURALGIA
     Dosage: 1200MG DAILY
  7. RIVOTRIL [Suspect]
     Indication: TRIGEMINAL NEURALGIA
     Dosage: 0.5MG DAILY
     Dates: start: 20090909, end: 20090909
  8. NORVASC [Suspect]
     Indication: HYPERTENSION
     Dosage: 5MG DAILY
  9. NEXIUM [Suspect]
     Dosage: 40MG DAILY
     Dates: start: 20090601
  10. ACETAMINOPHEN [Concomitant]
     Indication: TRIGEMINAL NEURALGIA
     Dosage: 1000MG DAILY
  11. LIDOCAINE [Concomitant]
     Indication: TRIGEMINAL NEURALGIA
     Dosage: 1 DOSAGE FORM/DAY
  12. DEXAMETHASONE TAB [Concomitant]
     Dosage: 3MG DAILY
  13. TENORMIN [Concomitant]
     Indication: TRIGEMINAL NEURALGIA
     Dosage: 50MG DAILY

REACTIONS (2)
  - BALANCE DISORDER [None]
  - SOMNOLENCE [None]
